FAERS Safety Report 23545163 (Version 2)
Quarter: 2024Q1

REPORT INFORMATION
  Report Type: Spontaneous
  Country: PT (occurrence: PT)
  Receive Date: 20240220
  Receipt Date: 20240312
  Transmission Date: 20240410
  Serious: Yes (Death, Other)
  Sender: FDA-Public Use
  Company Number: PT-ANIPHARMA-2024-PT-000004

PATIENT
  Sex: 0

DRUGS (49)
  1. ANASTROZOLE [Suspect]
     Active Substance: ANASTROZOLE
     Indication: Product used for unknown indication
     Route: 065
  2. XYZAL [Suspect]
     Active Substance: LEVOCETIRIZINE DIHYDROCHLORIDE
     Route: 065
  3. MIRTAZAPINE [Suspect]
     Active Substance: MIRTAZAPINE
     Route: 065
  4. RIBAVIRIN [Suspect]
     Active Substance: RIBAVIRIN
     Route: 065
  5. TRAMADOL HYDROCHLORIDE [Suspect]
     Active Substance: TRAMADOL HYDROCHLORIDE
     Route: 065
  6. BUPRENORPHINE [Suspect]
     Active Substance: BUPRENORPHINE
     Dosage: 35 G Q1H
     Route: 065
  7. ATORVASTATIN CALCIUM [Suspect]
     Active Substance: ATORVASTATIN CALCIUM
     Route: 065
  8. TELMISARTAN [Suspect]
     Active Substance: TELMISARTAN
     Route: 065
  9. SODIUM PICOSULFATE [Suspect]
     Active Substance: SODIUM PICOSULFATE
     Dosage: DOSE TEXT: 35 G
     Route: 065
  10. ACETAMINOPHEN [Suspect]
     Active Substance: ACETAMINOPHEN
     Route: 065
  11. EZETIMIBE [Suspect]
     Active Substance: EZETIMIBE
     Route: 065
  12. ESOMEPRAZOLE [Suspect]
     Active Substance: ESOMEPRAZOLE
     Route: 065
  13. DOCETAXEL [Suspect]
     Active Substance: DOCETAXEL\DOCETAXEL ANHYDROUS
     Route: 065
  14. PREGABALIN [Suspect]
     Active Substance: PREGABALIN
     Dosage: DOSE TEXT: 120 MG / DOSE TEXT: 50 MG
     Route: 065
  15. NITROGLYCERIN [Suspect]
     Active Substance: NITROGLYCERIN
     Dosage: DRUG USE FOR UNKNOWN INDICATION
     Route: 065
  16. TAMSULOSIN HYDROCHLORIDE [Suspect]
     Active Substance: TAMSULOSIN HYDROCHLORIDE
     Route: 065
  17. CODEINE SULFATE [Suspect]
     Active Substance: CODEINE SULFATE
     Route: 065
  18. DILTIAZEM HYDROCHLORIDE [Suspect]
     Active Substance: DILTIAZEM HYDROCHLORIDE
  19. CHOLECALCIFEROL [Suspect]
     Active Substance: CHOLECALCIFEROL
  20. PITAVASTATIN [Suspect]
     Active Substance: PITAVASTATIN
  21. BISOPROLOL FUMARATE [Suspect]
     Active Substance: BISOPROLOL FUMARATE
  22. PRAVASTATIN [Suspect]
     Active Substance: PRAVASTATIN
  23. SIMVASTATIN [Suspect]
     Active Substance: SIMVASTATIN
     Route: 065
  24. DONEPEZIL [Suspect]
     Active Substance: DONEPEZIL
  25. PENTAZOCINE [Suspect]
     Active Substance: PENTAZOCINE
  26. ESCHERICHIA COLI [Suspect]
     Active Substance: ESCHERICHIA COLI
  27. FLUVASTATIN [Suspect]
     Active Substance: FLUVASTATIN SODIUM
  28. IODINE [Suspect]
     Active Substance: IODINE
  29. EXEMESTANE [Suspect]
     Active Substance: EXEMESTANE
  30. ZOLEDRONIC ACID [Suspect]
     Active Substance: ZOLEDRONIC ACID
  31. ALISKIREN [Suspect]
     Active Substance: ALISKIREN
  32. LEDIPASVIR [Suspect]
     Active Substance: LEDIPASVIR
  33. TOCILIZUMAB [Suspect]
     Active Substance: TOCILIZUMAB
  34. ESCITALOPRAM OXALATE [Suspect]
     Active Substance: ESCITALOPRAM OXALATE
     Dosage: DOSE TEXT: 5 MG
     Route: 065
  35. FLUOXETINE [Suspect]
     Active Substance: FLUOXETINE HYDROCHLORIDE
  36. NORFLOXACIN [Suspect]
     Active Substance: NORFLOXACIN
  37. CODEINE PHOSPHATE [Suspect]
     Active Substance: CODEINE PHOSPHATE
  38. VERAPAMIL HYDROCHLORIDE [Suspect]
     Active Substance: VERAPAMIL HYDROCHLORIDE
  39. INDOMETHACIN [Suspect]
     Active Substance: INDOMETHACIN
  40. VORTIOXETINE [Suspect]
     Active Substance: VORTIOXETINE
  41. CELECOXIB [Suspect]
     Active Substance: CELECOXIB
  42. DOMPERIDONE MALEATE [Suspect]
     Active Substance: DOMPERIDONE MALEATE
  43. ADALIMUMAB [Suspect]
     Active Substance: ADALIMUMAB\ISOPROPYL ALCOHOL
  44. HYDROMORPHONE HYDROCHLORIDE [Suspect]
     Active Substance: HYDROMORPHONE HYDROCHLORIDE
  45. ASPIRIN [Suspect]
     Active Substance: ASPIRIN
     Dosage: DOSE TEXT: 5 MG / DOSE TEXT: 100 MG
     Route: 065
  46. SERTRALINE HYDROCHLORIDE [Suspect]
     Active Substance: SERTRALINE HYDROCHLORIDE
     Route: 065
  47. HYDROCHLOROTHIAZIDE [Suspect]
     Active Substance: HYDROCHLOROTHIAZIDE
     Route: 065
  48. POTASSIUM IODIDE [Suspect]
     Active Substance: POTASSIUM IODIDE
     Route: 065
  49. ENOXAPARIN SODIUM [Suspect]
     Active Substance: ENOXAPARIN SODIUM
     Route: 065

REACTIONS (3)
  - Haemorrhagic stroke [Fatal]
  - Tachycardia [Fatal]
  - Ocular discomfort [Fatal]
